FAERS Safety Report 9525258 (Version 1)
Quarter: 2013Q1

REPORT INFORMATION
  Report Type: Spontaneous
  Country: US (occurrence: None)
  Receive Date: 20130313
  Receipt Date: 20130313
  Transmission Date: 20140127
  Serious: Yes (Other)
  Sender: FDA-Public Use
  Company Number: 1000028780

PATIENT
  Age: 59 Year
  Sex: Male

DRUGS (3)
  1. SAVELLA [Suspect]
     Indication: ARTHRITIS
     Route: 048
     Dates: start: 20120225, end: 20120225
  2. SAVELLA [Suspect]
     Route: 048
     Dates: start: 20120228, end: 20120228
  3. AMBIEN (ZOLPIDEM TARTRATE) (ZOLPIDEM TARTRATE) [Concomitant]

REACTIONS (4)
  - Irritability [None]
  - Feeling abnormal [None]
  - Dysuria [None]
  - Off label use [None]
